FAERS Safety Report 9726359 (Version 1)
Quarter: 2013Q4

REPORT INFORMATION
  Report Type: Spontaneous
  Country: DE (occurrence: None)
  Receive Date: 20131129
  Receipt Date: 20131129
  Transmission Date: 20140711
  Serious: Yes (Other)
  Sender: FDA-Public Use
  Company Number: AUR-APL-2013-09728

PATIENT
  Age: 80 Year
  Sex: Male
  Weight: 72 kg

DRUGS (9)
  1. GABAPENTIN (GABAPENTIN) [Suspect]
     Indication: NEUROPATHY PERIPHERAL
     Route: 048
     Dates: start: 20130710, end: 20130712
  2. ZOSTEX (BRIVUDINE) [Concomitant]
  3. ASS (ACETYLICYLIC ACID) [Concomitant]
  4. HCT (HYDROCHLOROTHIAZIDE) [Concomitant]
  5. L THYROXINE (LEVOTHROXINE SODIUM) [Concomitant]
  6. AMLODIPINE (AMLODIPINE) [Concomitant]
  7. OMEPRAZOL (OMEPRAZOLE) [Concomitant]
  8. TORASEMIDE (TORASEMIDE) [Concomitant]
  9. TRANDOLAPRIL (TRANDOLAPRIL) [Concomitant]

REACTIONS (1)
  - Raynaud^s phenomenon [None]
